FAERS Safety Report 5098246-5 (Version None)
Quarter: 2006Q3

REPORT INFORMATION
  Report Type: 
  Country: None (occurrence: None)
  Receive Date: 20060906
  Receipt Date: 20060825
  Transmission Date: 20061208
  Serious: Yes (Hospitalization)
  Sender: FDA-Public Use
  Company Number: DE-BRISTOL-MYERS SQUIBB COMPANY-13490842

PATIENT

DRUGS (1)
  1. PRAVASIN [Suspect]

REACTIONS (2)
  - COMA [None]
  - HYPOGLYCAEMIA [None]
